FAERS Safety Report 21689208 (Version 7)
Quarter: 2023Q2

REPORT INFORMATION
  Report Type: Report from Study
  Country: US (occurrence: US)
  Receive Date: 20221206
  Receipt Date: 20230609
  Transmission Date: 20230721
  Serious: Yes (Hospitalization)
  Sender: FDA-Public Use
  Company Number: US-ARGENX-2022-ARGX-US001839

PATIENT
  Age: 69 Year
  Sex: Male

DRUGS (4)
  1. VYVGART [Suspect]
     Active Substance: EFGARTIGIMOD ALFA-FCAB
     Indication: Myasthenia gravis
     Dosage: UNK
     Route: 042
     Dates: start: 20210901
  2. VYVGART [Suspect]
     Active Substance: EFGARTIGIMOD ALFA-FCAB
     Dosage: UNK
     Route: 042
     Dates: start: 20220601
  3. VYVGART [Suspect]
     Active Substance: EFGARTIGIMOD ALFA-FCAB
     Dosage: UNK
     Route: 042
     Dates: start: 20220201, end: 202301
  4. VYVGART [Suspect]
     Active Substance: EFGARTIGIMOD ALFA-FCAB
     Dosage: UNK
     Route: 042
     Dates: start: 20230411

REACTIONS (15)
  - Myasthenia gravis crisis [Recovered/Resolved]
  - Malaise [Unknown]
  - Influenza [Unknown]
  - Headache [Recovered/Resolved]
  - Bronchitis [Unknown]
  - Choking [Unknown]
  - Muscular weakness [Unknown]
  - Muscle atrophy [Unknown]
  - Symptom recurrence [Unknown]
  - Tremor [Unknown]
  - Inappropriate schedule of product administration [Unknown]
  - Product availability issue [Unknown]
  - Therapy cessation [Unknown]
  - Therapy change [Unknown]
  - Fatigue [Unknown]

NARRATIVE: CASE EVENT DATE: 20230411
